FAERS Safety Report 4292763-3 (Version None)
Quarter: 2004Q1

REPORT INFORMATION
  Report Type: 
  Country: None (occurrence: None)
  Receive Date: 20040210
  Receipt Date: 20040127
  Transmission Date: 20041129
  Serious: Yes (Life-Threatening, Hospitalization)
  Sender: FDA-Public Use
  Company Number: 2003SE05724

PATIENT

DRUGS (3)
  1. SEROQUEL [Suspect]
     Indication: DEPRESSION
     Dosage: 250 MG DAILY TPL
     Dates: start: 20020101, end: 20030301
  2. SEROQUEL [Suspect]
     Indication: DEPRESSION
     Dosage: 25 MG DAILY TPL
     Dates: start: 20030301, end: 20030830
  3. ALDOMET [Concomitant]

REACTIONS (10)
  - AGITATION NEONATAL [None]
  - CAESAREAN SECTION [None]
  - CHILLS [None]
  - COMPLICATIONS OF MATERNAL EXPOSURE TO THERAPEUTIC DRUGS [None]
  - DRUG WITHDRAWAL SYNDROME NEONATAL [None]
  - DYSPNOEA [None]
  - HYPERBILIRUBINAEMIA NEONATAL [None]
  - MATERNAL DRUGS AFFECTING FOETUS [None]
  - NEONATAL DISORDER [None]
  - TREMOR NEONATAL [None]
